FAERS Safety Report 15583094 (Version 1)
Quarter: 2018Q4

REPORT INFORMATION
  Report Type: Spontaneous
  Country: US (occurrence: US)
  Receive Date: 20181103
  Receipt Date: 20181103
  Transmission Date: 20190205
  Serious: No
  Sender: FDA-Public Use
  Company Number: US-TEVA-2018-US-969215

PATIENT
  Sex: Female

DRUGS (1)
  1. BUPRENORPHINE ACTAVIS [Suspect]
     Active Substance: BUPRENORPHINE
     Dosage: 24 MILLIGRAM DAILY;
     Route: 065
     Dates: start: 20181021

REACTIONS (2)
  - Therapeutic response decreased [Unknown]
  - Withdrawal syndrome [Unknown]

NARRATIVE: CASE EVENT DATE: 20181023
